FAERS Safety Report 12124597 (Version 1)
Quarter: 2016Q1

REPORT INFORMATION
  Report Type: Report from Study
  Country: FR (occurrence: FR)
  Receive Date: 20160229
  Receipt Date: 20160229
  Transmission Date: 20160526
  Serious: Yes (Other)
  Sender: FDA-Public Use
  Company Number: FR-SA-200615429EU

PATIENT
  Age: 32 Year
  Sex: Female
  Weight: 46 kg

DRUGS (6)
  1. LEVOCARNIL [Concomitant]
     Active Substance: LEVOCARNITINE
     Indication: FATIGUE
     Route: 048
     Dates: start: 20041217
  2. HYDROCORTISONE/CHLORHEXIDINE GLUCONATE [Concomitant]
     Indication: ASTHMA
     Dosage: DOSE AS USED: 2 PUFF
     Route: 055
     Dates: start: 20060401
  3. HARMONET [Concomitant]
     Active Substance: ETHINYL ESTRADIOL\GESTODENE
     Indication: CONTRACEPTION
     Route: 048
     Dates: start: 20050105
  4. VENTOLIN [Concomitant]
     Active Substance: ALBUTEROL SULFATE
     Indication: ASTHMA
     Dosage: DOSE AS USED: 2 PUFF
     Route: 055
     Dates: start: 20060113
  5. NASACORT [Concomitant]
     Active Substance: TRIAMCINOLONE ACETONIDE
     Indication: ASTHMA
     Dosage: DOSE AS USED: 1 PUFF
     Route: 055
     Dates: start: 20050802
  6. TERIFLUNOMIDE [Suspect]
     Active Substance: TERIFLUNOMIDE
     Indication: MULTIPLE SCLEROSIS
     Route: 048
     Dates: start: 20041122

REACTIONS (2)
  - Pyrexia [Recovered/Resolved]
  - Pyelonephritis [Recovered/Resolved]

NARRATIVE: CASE EVENT DATE: 20060916
